FAERS Safety Report 6093600-7 (Version None)
Quarter: 2009Q1

REPORT INFORMATION
  Report Type: 
  Country: None (occurrence: None)
  Receive Date: 20090219
  Receipt Date: 20081023
  Transmission Date: 20090719
  Serious: No
  Sender: FDA-Public Use
  Company Number: WAES 0810USA04445

PATIENT
  Age: 43 Year
  Sex: Female
  Weight: 118.8424 kg

DRUGS (12)
  1. JANUVIA [Suspect]
     Indication: DIABETES MELLITUS
     Dosage: 100 MG/DAILY/PO
     Route: 048
     Dates: start: 20071217, end: 20080925
  2. DYAZIDE [Concomitant]
  3. FLOVENT [Concomitant]
  4. GLUCOMET [Concomitant]
  5. LANTUS [Concomitant]
  6. PRILOSEC [Concomitant]
  7. PROZAC [Concomitant]
  8. SINGULAIR [Concomitant]
  9. ZANTAC [Concomitant]
  10. ALBUTEROL [Concomitant]
  11. DICLOFENAC [Concomitant]
  12. SULFACETAMIDE SODIUM [Concomitant]

REACTIONS (5)
  - BACK PAIN [None]
  - MUSCULOSKELETAL PAIN [None]
  - PRURITUS [None]
  - RASH MACULAR [None]
  - RENAL FAILURE [None]
